FAERS Safety Report 21274333 (Version 1)
Quarter: 2022Q3

REPORT INFORMATION
  Report Type: Spontaneous
  Country: US (occurrence: None)
  Receive Date: 20220830
  Receipt Date: 20220830
  Transmission Date: 20221027
  Serious: No
  Sender: FDA-Public Use
  Company Number: None

PATIENT
  Sex: Female

DRUGS (1)
  1. OPSUMIT [Suspect]
     Active Substance: MACITENTAN
     Indication: Pulmonary arterial hypertension
     Dosage: FREQUENCY : DAILY;?
     Route: 048
     Dates: start: 20220826

REACTIONS (6)
  - Primary biliary cholangitis [None]
  - Transient ischaemic attack [None]
  - Pain [None]
  - Hypotension [None]
  - Therapy cessation [None]
  - Haemoglobin decreased [None]
